FAERS Safety Report 16962015 (Version 1)
Quarter: 2019Q4

REPORT INFORMATION
  Report Type: Spontaneous
  Country: US (occurrence: US)
  Receive Date: 20191024
  Receipt Date: 20191024
  Transmission Date: 20200122
  Serious: Yes (Hospitalization)
  Sender: FDA-Public Use
  Company Number: None

PATIENT
  Age: 30 Year
  Sex: Female
  Weight: 81 kg

DRUGS (7)
  1. AZITHROMYCIN ANHYDROUS. [Concomitant]
     Active Substance: AZITHROMYCIN ANHYDROUS
  2. PROMETHAZINE [Concomitant]
     Active Substance: PROMETHAZINE HYDROCHLORIDE
  3. CIMZIA [Suspect]
     Active Substance: CERTOLIZUMAB PEGOL
     Indication: PSORIATIC ARTHROPATHY
     Dosage: ?          OTHER FREQUENCY:EVERY 2 WEEKS;?
     Route: 058
     Dates: end: 20190806
  4. GUAIFENESIN. [Concomitant]
     Active Substance: GUAIFENESIN
  5. PRENATAL VITAMIN [Concomitant]
     Active Substance: VITAMINS
  6. PYRIDOXINE, VITAMIN B6 [Concomitant]
  7. CEFDINIR. [Concomitant]
     Active Substance: CEFDINIR

REACTIONS (4)
  - Subclavian vein thrombosis [None]
  - Pain [None]
  - Jugular vein thrombosis [None]
  - Deep vein thrombosis [None]

NARRATIVE: CASE EVENT DATE: 20190806
